FAERS Safety Report 6303570-1 (Version None)
Quarter: 2009Q3

REPORT INFORMATION
  Report Type: 
  Country: None (occurrence: None)
  Receive Date: 20090807
  Receipt Date: 20090807
  Transmission Date: 20100115
  Serious: No
  Sender: FDA-Public Use
  Company Number: None

PATIENT
  Age: 26 Year
  Sex: Female
  Weight: 62.5964 kg

DRUGS (1)
  1. DIFFERIN [Suspect]
     Indication: ACNE
     Dates: start: 20080818, end: 20081101

REACTIONS (1)
  - ALOPECIA [None]
